FAERS Safety Report 16161835 (Version 2)
Quarter: 2019Q3

REPORT INFORMATION
  Report Type: Spontaneous
  Country: JP (occurrence: JP)
  Receive Date: 20190405
  Receipt Date: 20190705
  Transmission Date: 20191004
  Serious: Yes (Other)
  Sender: FDA-Public Use
  Company Number: JP-ASTELLAS-2019JP005792

PATIENT
  Age: 42 Year
  Sex: Male

DRUGS (25)
  1. GRACEPTOR [Suspect]
     Active Substance: TACROLIMUS
     Dosage: 8 MG/DAY, UNKNOWN FREQ.
     Route: 048
     Dates: start: 20160209, end: 20160210
  2. GRACEPTOR [Suspect]
     Active Substance: TACROLIMUS
     Dosage: 7 MG/DAY, UNKNOWN FREQ.
     Route: 048
     Dates: start: 20160228, end: 20160229
  3. GRACEPTOR [Suspect]
     Active Substance: TACROLIMUS
     Dosage: 6 MG/DAY, UNKNOWN FREQ.
     Route: 048
     Dates: start: 20160408, end: 20160428
  4. GRACEPTOR [Suspect]
     Active Substance: TACROLIMUS
     Dosage: 11 MG/DAY, UNKNOWN FREQ.
     Route: 048
     Dates: start: 20160223, end: 20160224
  5. GRACEPTOR [Suspect]
     Active Substance: TACROLIMUS
     Dosage: 4 MG/DAY, UNKNOWN FREQ.
     Route: 048
     Dates: start: 20160609, end: 20160706
  6. GRACEPTOR [Suspect]
     Active Substance: TACROLIMUS
     Dosage: 3.5 MG/DAY, UNKNOWN FREQ.
     Route: 048
     Dates: start: 20160707, end: 20161123
  7. GRACEPTOR [Suspect]
     Active Substance: TACROLIMUS
     Dosage: 3.5 MG/DAY, UNKNOWN FREQ.
     Route: 048
     Dates: start: 20170302, end: 20170405
  8. GRACEPTOR [Suspect]
     Active Substance: TACROLIMUS
     Dosage: 3 MG/DAY, UNKNOWN FREQ.
     Route: 048
     Dates: start: 20170406, end: 20170522
  9. METHYLPREDNISOLONE. [Concomitant]
     Active Substance: METHYLPREDNISOLONE
     Indication: IMMUNOSUPPRESSION
     Dosage: UNK UNK, UNKNOWN FREQ.
     Route: 065
  10. GRACEPTOR [Suspect]
     Active Substance: TACROLIMUS
     Dosage: 9.5 MG/DAY, UNKNOWN FREQ.
     Route: 048
     Dates: start: 20160226, end: 20160226
  11. GRACEPTOR [Suspect]
     Active Substance: TACROLIMUS
     Dosage: 6.5 MG/DAY, UNKNOWN FREQ.
     Route: 048
     Dates: start: 20160311, end: 20160407
  12. GRACEPTOR [Suspect]
     Active Substance: TACROLIMUS
     Dosage: 5.5 MG/DAY, UNKNOWN FREQ.
     Route: 048
     Dates: start: 20160429, end: 20160511
  13. GRACEPTOR [Suspect]
     Active Substance: TACROLIMUS
     Dosage: 4 MG/DAY, UNKNOWN FREQ.
     Route: 048
     Dates: start: 20161124, end: 20170301
  14. MYCOPHENOLATE MOFETIL ACCORD [Concomitant]
     Active Substance: MYCOPHENOLATE MOFETIL
     Indication: IMMUNOSUPPRESSION
     Dosage: UNK UNK, UNKNOWN FREQ.
     Route: 065
  15. GRACEPTOR [Suspect]
     Active Substance: TACROLIMUS
     Indication: IMMUNOSUPPRESSION
     Dosage: 7 MG/DAY, UNKNOWN FREQ.
     Route: 048
     Dates: start: 20160205, end: 20160205
  16. GRACEPTOR [Suspect]
     Active Substance: TACROLIMUS
     Dosage: 10 MG/DAY, UNKNOWN FREQ.
     Route: 048
     Dates: start: 20160217, end: 20160222
  17. GRACEPTOR [Suspect]
     Active Substance: TACROLIMUS
     Dosage: 8.5 MG/DAY, UNKNOWN FREQ.
     Route: 048
     Dates: start: 20160227, end: 20160227
  18. GRACEPTOR [Suspect]
     Active Substance: TACROLIMUS
     Dosage: 5 MG/DAY, UNKNOWN FREQ.
     Route: 048
     Dates: start: 20160512, end: 20160608
  19. RITUXIMAB. [Concomitant]
     Active Substance: RITUXIMAB
     Indication: IMMUNOSUPPRESSION
     Dosage: UNK UNK, UNKNOWN FREQ.
     Route: 065
  20. GRACEPTOR [Suspect]
     Active Substance: TACROLIMUS
     Dosage: 8.5 MG/DAY, UNKNOWN FREQ.
     Route: 048
     Dates: start: 20160211, end: 20160214
  21. GRACEPTOR [Suspect]
     Active Substance: TACROLIMUS
     Dosage: 9 MG/DAY, UNKNOWN FREQ.
     Route: 048
     Dates: start: 20160215, end: 20160216
  22. GRACEPTOR [Suspect]
     Active Substance: TACROLIMUS
     Dosage: 6 MG/DAY, UNKNOWN FREQ.
     Route: 048
     Dates: start: 20160301, end: 20160310
  23. GRACEPTOR [Suspect]
     Active Substance: TACROLIMUS
     Dosage: 3.5 MG/DAY, UNKNOWN FREQ.
     Route: 048
     Dates: start: 20170523
  24. BASILIXIMAB [Concomitant]
     Active Substance: BASILIXIMAB
     Indication: IMMUNOSUPPRESSION
     Dosage: UNK UNK, UNKNOWN FREQ.
     Route: 065
  25. GRACEPTOR [Suspect]
     Active Substance: TACROLIMUS
     Dosage: 10 MG/DAY, UNKNOWN FREQ.
     Route: 048
     Dates: start: 20160225, end: 20160225

REACTIONS (1)
  - Thrombotic microangiopathy [Recovered/Resolved]

NARRATIVE: CASE EVENT DATE: 20160220
